FAERS Safety Report 7416019-2 (Version None)
Quarter: 2011Q2

REPORT INFORMATION
  Report Type: 
  Country: None (occurrence: None)
  Receive Date: 20110414
  Receipt Date: 20110331
  Transmission Date: 20111010
  Serious: Yes (Hospitalization)
  Sender: FDA-Public Use
  Company Number: JP-CELGENEUS-087-21880-11021723

PATIENT
  Sex: Male

DRUGS (17)
  1. REVLIMID [Suspect]
     Dosage: 15 MILLIGRAM
     Route: 048
     Dates: start: 20110128, end: 20110217
  2. TAKEPRON [Concomitant]
     Indication: PROPHYLAXIS
     Dosage: 15 MILLIGRAM
     Route: 048
     Dates: start: 20101014, end: 20110223
  3. ALFAROL [Concomitant]
     Indication: PROPHYLAXIS
     Dosage: .5 NANOGRAM
     Route: 048
     Dates: start: 20101014, end: 20110223
  4. REVLIMID [Suspect]
     Indication: MULTIPLE MYELOMA
     Dosage: 20 MILLIGRAM
     Route: 048
     Dates: start: 20101014, end: 20101111
  5. ZOVIRAX [Concomitant]
     Indication: PROPHYLAXIS
     Dosage: 200 MILLIGRAM
     Route: 048
     Dates: start: 20101014, end: 20110223
  6. REVLIMID [Suspect]
     Dosage: 20 MILLIGRAM
     Route: 048
     Dates: start: 20101112, end: 20110106
  7. REVLIMID [Suspect]
     Dosage: 15 MILLIGRAM
     Route: 048
     Dates: start: 20110107, end: 20110116
  8. DUROTEP [Concomitant]
     Indication: PROPHYLAXIS
     Dosage: 21 MILLIGRAM
     Route: 062
     Dates: start: 20101014, end: 20110223
  9. LENADEX [Suspect]
     Dosage: 16 MILLIGRAM
     Route: 048
     Dates: start: 20101112, end: 20110217
  10. SELBEX [Concomitant]
     Indication: PROPHYLAXIS
     Dosage: 3 CAPSULE
     Route: 048
     Dates: start: 20101014, end: 20110223
  11. CALONAL [Concomitant]
     Indication: PROPHYLAXIS
     Dosage: 1800 MILLIGRAM
     Route: 048
     Dates: start: 20101014, end: 20110223
  12. LAXOBERON [Concomitant]
     Indication: PROPHYLAXIS
     Dosage: 5 MILLIGRAM
     Route: 048
     Dates: start: 20101014, end: 20110223
  13. BAKTAR [Concomitant]
     Indication: PROPHYLAXIS
     Dosage: 4 TABLET
     Route: 048
     Dates: start: 20101014, end: 20110223
  14. MAGMITT [Concomitant]
     Indication: PROPHYLAXIS
     Dosage: 330 MILLIGRAM
     Route: 048
     Dates: start: 20101014, end: 20110223
  15. OXINORM [Concomitant]
     Indication: PROPHYLAXIS
     Dosage: 20 MILLIGRAM
     Route: 048
     Dates: start: 20101014, end: 20110223
  16. LENADEX [Suspect]
     Indication: MULTIPLE MYELOMA
     Dosage: 16 MILLIGRAM
     Route: 048
     Dates: start: 20101014, end: 20101111
  17. AMLODIN [Concomitant]
     Indication: HYPERTENSION
     Dosage: 2.5 MILLIGRAM
     Route: 048
     Dates: start: 20101014, end: 20110223

REACTIONS (3)
  - RASH [None]
  - POSTOPERATIVE ILEUS [None]
  - MALAISE [None]
